FAERS Safety Report 5109458-6 (Version None)
Quarter: 2006Q3

REPORT INFORMATION
  Report Type: 
  Country: None (occurrence: None)
  Receive Date: 20060920
  Receipt Date: 20060915
  Transmission Date: 20061208
  Serious: Yes (Death)
  Sender: FDA-Public Use
  Company Number: FR-ROXANE LABORATORIES, INC-2006-DE-04980GD

PATIENT
  Sex: Female

DRUGS (4)
  1. INTERFERON GAMMA [Suspect]
     Indication: SYSTEMIC SCLEROSIS
     Dosage: 85 MG THREE TIMES PER WEEK
  2. PREDNISONE [Suspect]
     Indication: RAYNAUD'S PHENOMENON
  3. ILOMEDIN [Suspect]
     Indication: RAYNAUD'S PHENOMENON
  4. AMLODIPINE [Suspect]
     Indication: RAYNAUD'S PHENOMENON

REACTIONS (6)
  - CARDIAC TAMPONADE [None]
  - DRUG INEFFECTIVE [None]
  - INTERSTITIAL LUNG DISEASE [None]
  - PERICARDIAL FIBROSIS [None]
  - RESPIRATORY FAILURE [None]
  - SYSTEMIC SCLEROSIS [None]
